FAERS Safety Report 8737327 (Version 2)
Quarter: 2012Q4

REPORT INFORMATION
  Report Type: 
  Country: US (occurrence: US)
  Receive Date: 20120822
  Receipt Date: 20121003
  Transmission Date: 20130627
  Serious: No
  Sender: FDA-Public Use
  Company Number: US-ASTRAZENECA-2012SE57449

PATIENT
  Age: 62 Year
  Sex: Female
  Weight: 95.3 kg

DRUGS (16)
  1. NEXIUM [Suspect]
     Indication: GASTROOESOPHAGEAL REFLUX DISEASE
     Route: 048
     Dates: start: 2011, end: 201111
  2. NEXIUM [Suspect]
     Indication: GASTROOESOPHAGEAL REFLUX DISEASE
     Route: 048
     Dates: start: 2011, end: 201111
  3. NEXIUM [Suspect]
     Indication: OESOPHAGEAL DISORDER
     Route: 048
     Dates: start: 2011, end: 201111
  4. NEXIUM [Suspect]
     Indication: GASTROOESOPHAGEAL REFLUX DISEASE
     Route: 048
     Dates: start: 201207, end: 201207
  5. NEXIUM [Suspect]
     Indication: GASTROOESOPHAGEAL REFLUX DISEASE
     Route: 048
     Dates: start: 201207, end: 201207
  6. NEXIUM [Suspect]
     Indication: OESOPHAGEAL DISORDER
     Route: 048
     Dates: start: 201207, end: 201207
  7. PRILOSEC OTC [Suspect]
     Indication: GASTROOESOPHAGEAL REFLUX DISEASE
     Dosage: DAILY
     Route: 048
     Dates: start: 201201, end: 201201
  8. ASA [Concomitant]
     Indication: CARDIAC DISORDER
  9. PAXIL [Concomitant]
     Indication: BIPOLAR DISORDER
  10. TRILEPTAL [Concomitant]
     Indication: BIPOLAR DISORDER
  11. LIPITOR [Concomitant]
     Indication: BLOOD CHOLESTEROL INCREASED
  12. DIAZEPAM [Concomitant]
     Indication: MOOD SWINGS
  13. ABILIFY [Concomitant]
     Indication: BIPOLAR DISORDER
  14. RHEUMATOID ARTHRITIS DRUG [Concomitant]
     Indication: RHEUMATOID ARTHRITIS
  15. NERVE DAMAGE DRUG [Concomitant]
     Indication: NERVE INJURY
  16. SPINAL STENOSIS DRUG [Concomitant]
     Indication: SPINAL COLUMN STENOSIS

REACTIONS (10)
  - Pain [Not Recovered/Not Resolved]
  - Gastrooesophageal reflux disease [Unknown]
  - Gastrointestinal sounds abnormal [Unknown]
  - Dyspepsia [Unknown]
  - Abdominal pain upper [Not Recovered/Not Resolved]
  - Gastrooesophageal reflux disease [Unknown]
  - Intentional drug misuse [Unknown]
  - Drug dose omission [Unknown]
  - Off label use [Unknown]
  - Drug ineffective [Unknown]
